FAERS Safety Report 5042961-6 (Version None)
Quarter: 2006Q2

REPORT INFORMATION
  Report Type: 
  Country: None (occurrence: None)
  Receive Date: 20060627
  Receipt Date: 20060608
  Transmission Date: 20061013
  Serious: Yes (Hospitalization)
  Sender: FDA-Public Use
  Company Number: JP200606002754

PATIENT
  Age: 55 Year
  Sex: Female

DRUGS (1)
  1. HUMACART NPH (HUMAN INSULIN (RDNA ORIGIN) NPH) [Suspect]
     Indication: DIABETES MELLITUS
     Dates: end: 20030101

REACTIONS (2)
  - ANAPHYLACTIC SHOCK [None]
  - DEPRESSED LEVEL OF CONSCIOUSNESS [None]
